FAERS Safety Report 5763481-7 (Version None)
Quarter: 2008Q2

REPORT INFORMATION
  Report Type: 
  Country: None (occurrence: None)
  Receive Date: 20080529
  Receipt Date: 20080410
  Transmission Date: 20081010
  Serious: Yes (Other)
  Sender: FDA-Public Use
  Company Number: CIP07000969

PATIENT
  Age: 64 Year
  Sex: Female

DRUGS (7)
  1. ACTONEL [Suspect]
     Dosage: 35 MG ONCE A WEEK, ORAL
     Route: 048
     Dates: start: 20021120, end: 20050825
  2. FOSAMAX [Suspect]
     Indication: OSTEOPENIA
     Dosage: 10 MG DAILY, ORAL
     Route: 048
     Dates: start: 20001026, end: 20021105
  3. CALCIUM WITH VITAMIN D (COLECALCIFEROL, CALCIUIM CARBONATE) [Concomitant]
  4. ACYCLOVIR (ACICLOVIR) TABLET [Concomitant]
  5. VOLTAREN [Concomitant]
  6. CELEBREX [Concomitant]
  7. WELLBUTRIN [Concomitant]

REACTIONS (25)
  - ANXIETY [None]
  - DENTAL PULP DISORDER [None]
  - DEPRESSION [None]
  - GINGIVAL ULCERATION [None]
  - GINGIVITIS [None]
  - IMPAIRED HEALING [None]
  - JAW DISORDER [None]
  - MASTICATION DISORDER [None]
  - MOUTH ULCERATION [None]
  - OEDEMA MOUTH [None]
  - ORAL CAVITY FISTULA [None]
  - ORAL INFECTION [None]
  - ORAL PAIN [None]
  - OSTEONECROSIS [None]
  - PAIN [None]
  - PALATAL DISORDER [None]
  - PALATAL OEDEMA [None]
  - PERIODONTITIS [None]
  - PRIMARY SEQUESTRUM [None]
  - PURULENT DISCHARGE [None]
  - SINUS CONGESTION [None]
  - SWELLING FACE [None]
  - TOOTH ABSCESS [None]
  - TOOTH EXTRACTION [None]
  - TOOTHACHE [None]
